FAERS Safety Report 14187376 (Version 3)
Quarter: 2017Q4

REPORT INFORMATION
  Report Type: Spontaneous
  Country: US (occurrence: US)
  Receive Date: 20171114
  Receipt Date: 20171228
  Transmission Date: 20180321
  Serious: Yes (Other)
  Sender: FDA-Public Use
  Company Number: US-SUN PHARMACEUTICAL INDUSTRIES LTD-2017US-154639

PATIENT
  Age: 48 Year
  Sex: Male

DRUGS (28)
  1. TACROLIMUS. [Concomitant]
     Active Substance: TACROLIMUS
     Indication: IMMUNOSUPPRESSANT DRUG THERAPY
     Route: 065
  2. CEFTAZIDIME. [Concomitant]
     Active Substance: CEFTAZIDIME
     Route: 031
  3. FOSCARNET [Concomitant]
     Active Substance: FOSCARNET
     Indication: ERYTHEMA OF EYELID
     Dosage: ()
     Route: 031
  4. VANCOMYCIN [Concomitant]
     Active Substance: VANCOMYCIN
     Indication: EYE SWELLING
     Dosage: ()
     Route: 031
  5. CEFTAZIDIME. [Concomitant]
     Active Substance: CEFTAZIDIME
     Indication: ERYTHEMA OF EYELID
  6. CEFTRIAXONE. [Concomitant]
     Active Substance: CEFTRIAXONE
     Dosage: ()
  7. FOSCARNET [Concomitant]
     Active Substance: FOSCARNET
     Indication: EYE SWELLING
     Route: 031
  8. PREDNISONE. [Concomitant]
     Active Substance: PREDNISONE
     Indication: IMMUNOSUPPRESSANT DRUG THERAPY
     Route: 065
  9. VORICONAZOLE. [Concomitant]
     Active Substance: VORICONAZOLE
     Indication: ERYTHEMA OF EYELID
     Dosage: ()
     Route: 031
  10. AMIKACIN [Concomitant]
     Active Substance: AMIKACIN
     Indication: ERYTHEMA OF EYELID
     Dosage: ()
     Route: 031
  11. CEFTAZIDIME. [Concomitant]
     Active Substance: CEFTAZIDIME
     Indication: EYE SWELLING
     Dosage: ()
     Route: 031
  12. FOSCARNET [Concomitant]
     Active Substance: FOSCARNET
     Indication: ERYTHEMA OF EYELID
     Dosage: ()
     Route: 031
  13. PREDNISONE. [Concomitant]
     Active Substance: PREDNISONE
     Dosage: ()
  14. VANCOMYCIN [Concomitant]
     Active Substance: VANCOMYCIN
     Indication: ERYTHEMA OF EYELID
  15. VORICONAZOLE. [Concomitant]
     Active Substance: VORICONAZOLE
     Indication: ERYTHEMA OF EYELID
     Dosage: ()
     Route: 031
  16. SULPHAMETHOXAZOLE/TRIMETHOPRIM [Suspect]
     Active Substance: SULFAMETHOXAZOLE\TRIMETHOPRIM
     Indication: NOCARDIOSIS
     Route: 065
  17. FOSCARNET [Concomitant]
     Active Substance: FOSCARNET
     Indication: EYE SWELLING
  18. AMIKACIN [Concomitant]
     Active Substance: AMIKACIN
     Indication: EYE SWELLING
     Dosage: ()
     Route: 031
  19. VANCOMYCIN [Concomitant]
     Active Substance: VANCOMYCIN
     Indication: ERYTHEMA OF EYELID
     Dosage: ()
     Route: 031
  20. VORICONAZOLE. [Concomitant]
     Active Substance: VORICONAZOLE
     Indication: EYE SWELLING
     Route: 031
  21. AMIKACIN [Concomitant]
     Active Substance: AMIKACIN
     Indication: ERYTHEMA OF EYELID
     Route: 031
  22. CEFTAZIDIME. [Concomitant]
     Active Substance: CEFTAZIDIME
     Dosage: ()
     Route: 031
  23. CEFTRIAXONE. [Concomitant]
     Active Substance: CEFTRIAXONE
     Indication: NOCARDIOSIS
     Route: 065
  24. AMIKACIN [Concomitant]
     Active Substance: AMIKACIN
     Indication: EYE SWELLING
  25. TACROLIMUS. [Concomitant]
     Active Substance: TACROLIMUS
     Dosage: ()
  26. VANCOMYCIN [Concomitant]
     Active Substance: VANCOMYCIN
     Indication: EYE SWELLING
     Dosage: UNK
     Route: 031
  27. VORICONAZOLE. [Concomitant]
     Active Substance: VORICONAZOLE
     Indication: EYE SWELLING
  28. SULFAMETHOXAZOLE, TRIMETHOPRIM [Suspect]
     Active Substance: SULFAMETHOXAZOLE\TRIMETHOPRIM
     Indication: NOCARDIOSIS
     Dosage: ()

REACTIONS (4)
  - Vomiting [Unknown]
  - Hypotension [Unknown]
  - Nausea [Unknown]
  - Acute kidney injury [Unknown]
